FAERS Safety Report 12209162 (Version 1)
Quarter: 2016Q1

REPORT INFORMATION
  Report Type: Report from Study
  Country: US (occurrence: US)
  Receive Date: 20160324
  Receipt Date: 20160324
  Transmission Date: 20160526
  Serious: Yes (Hospitalization)
  Sender: FDA-Public Use
  Company Number: US-APOPHARMA-2016AP007271

PATIENT
  Age: 16 Year
  Sex: Female
  Weight: 42 kg

DRUGS (5)
  1. MILRINONE [Concomitant]
     Active Substance: MILRINONE
     Indication: PRODUCT USED FOR UNKNOWN INDICATION
     Route: 065
  2. DEFERIPRONE [Suspect]
     Active Substance: DEFERIPRONE
     Indication: SICKLE CELL ANAEMIA
     Dosage: 24 MG/KG, TID
     Route: 048
     Dates: start: 20120810
  3. DEFERIPRONE [Suspect]
     Active Substance: DEFERIPRONE
     Indication: HAEMOCHROMATOSIS
  4. FLOLAN [Concomitant]
     Active Substance: EPOPROSTENOL SODIUM
     Indication: PRODUCT USED FOR UNKNOWN INDICATION
     Route: 065
  5. SILDENAFIL. [Concomitant]
     Active Substance: SILDENAFIL
     Indication: PRODUCT USED FOR UNKNOWN INDICATION
     Route: 065

REACTIONS (2)
  - Staphylococcal sepsis [Recovering/Resolving]
  - Pneumonia [Recovering/Resolving]

NARRATIVE: CASE EVENT DATE: 20160227
